FAERS Safety Report 25989800 (Version 2)
Quarter: 2025Q4

REPORT INFORMATION
  Report Type: Report from Study
  Country: US (occurrence: US)
  Receive Date: 20251103
  Receipt Date: 20251109
  Transmission Date: 20260118
  Serious: Yes (Other)
  Sender: JAZZ
  Company Number: US-JAZZ PHARMACEUTICALS-2025-US-024600

PATIENT
  Age: 25 Year
  Sex: Female

DRUGS (5)
  1. XYWAV [Suspect]
     Active Substance: CALCIUM OXYBATE\MAGNESIUM OXYBATE\POTASSIUM OXYBATE\SODIUM OXYBATE
     Indication: Hypersomnia
     Dosage: 2.25 GRAM, QD
     Dates: start: 20251019, end: 20251020
  2. CONCERTA [Concomitant]
     Active Substance: METHYLPHENIDATE HYDROCHLORIDE
     Indication: Product used for unknown indication
     Dosage: UNK, QD
  3. ZOLOFT [Concomitant]
     Active Substance: SERTRALINE HYDROCHLORIDE
     Indication: Product used for unknown indication
     Dosage: UNK, QD
  4. METOPROLOL SUCCINATE [Concomitant]
     Active Substance: METOPROLOL SUCCINATE
     Indication: Product used for unknown indication
     Dosage: UNK, QD
  5. MIDODRINE [Concomitant]
     Active Substance: MIDODRINE
     Indication: Hypotension
     Dosage: UNK, QD

REACTIONS (11)
  - Petit mal epilepsy [Recovered/Resolved]
  - Sleep paralysis [Recovered/Resolved]
  - Apnoea [Recovered/Resolved]
  - Asthenia [Unknown]
  - Nausea [Unknown]
  - Headache [Unknown]
  - Feeling abnormal [Unknown]
  - Disturbance in attention [Unknown]
  - Insomnia [Unknown]
  - Feeling hot [Unknown]
  - Memory impairment [Unknown]

NARRATIVE: CASE EVENT DATE: 20251019
